FAERS Safety Report 5679833-X (Version None)
Quarter: 2008Q1

REPORT INFORMATION
  Report Type: 
  Country: None (occurrence: None)
  Receive Date: 20080325
  Receipt Date: 20080319
  Transmission Date: 20080703
  Serious: Yes (Other)
  Sender: FDA-Public Use
  Company Number: US-ALLERGAN-0803359US

PATIENT
  Sex: Male

DRUGS (2)
  1. BOTOX [Suspect]
     Indication: NECK PAIN
     Dosage: 200 UNITS, SINGLE
     Route: 030
     Dates: start: 20080304, end: 20080304
  2. OXYCONTIN [Concomitant]
     Indication: NECK PAIN
     Dosage: 20 MG, 6/DAY
     Route: 048

REACTIONS (1)
  - MUSCULAR WEAKNESS [None]
